FAERS Safety Report 5333928-9 (Version None)
Quarter: 2007Q2

REPORT INFORMATION
  Report Type: 
  Country: None (occurrence: None)
  Receive Date: 20070524
  Receipt Date: 20070514
  Transmission Date: 20071010
  Serious: Yes (Hospitalization)
  Sender: FDA-Public Use
  Company Number: TR-SANOFI-SYNTHELABO-A01200705233

PATIENT
  Age: 71 Year
  Sex: Male

DRUGS (4)
  1. ACETYLSALICYLIC ACID SRT [Concomitant]
     Indication: HYPERCHOLESTEROLAEMIA
     Route: 065
  2. ATORVASTATIN [Concomitant]
     Indication: HYPERCHOLESTEROLAEMIA
     Route: 065
  3. CLOPIDOGREL [Suspect]
     Indication: ANGIOPLASTY
     Route: 048
  4. CLOPIDOGREL [Suspect]
     Indication: STENT PLACEMENT
     Route: 048

REACTIONS (1)
  - NON-CARDIOGENIC PULMONARY OEDEMA [None]
